FAERS Safety Report 24889165 (Version 1)
Quarter: 2025Q1

REPORT INFORMATION
  Report Type: Spontaneous
  Country: US (occurrence: US)
  Receive Date: 20250127
  Receipt Date: 20250127
  Transmission Date: 20250409
  Serious: No
  Sender: RANBAXY
  Company Number: US-SUN PHARMACEUTICAL INDUSTRIES LTD-2024R1-474881

PATIENT
  Age: 74 Year
  Sex: Female

DRUGS (2)
  1. LEVULAN KERASTICK [Suspect]
     Active Substance: AMINOLEVULINIC ACID HYDROCHLORIDE
     Indication: Actinic keratosis
     Route: 061
     Dates: start: 20241017, end: 20241017
  2. DEVICE [Suspect]
     Active Substance: DEVICE
     Indication: Product used for unknown indication
     Route: 061

REACTIONS (6)
  - Administration site discomfort [Unknown]
  - Drug intolerance [Unknown]
  - Administration site pain [Recovered/Resolved]
  - Pruritus [Recovered/Resolved]
  - Tremor [Unknown]
  - Therapy cessation [Unknown]

NARRATIVE: CASE EVENT DATE: 20241017
